FAERS Safety Report 20175818 (Version 1)
Quarter: 2021Q4

REPORT INFORMATION
  Report Type: Spontaneous
  Country: US (occurrence: None)
  Receive Date: 20211213
  Receipt Date: 20211213
  Transmission Date: 20220303
  Serious: Yes (Other)
  Sender: FDA-Public Use
  Company Number: US-MLMSERVICE-20211126-3241232-1

PATIENT
  Age: 61 Year
  Sex: Male

DRUGS (1)
  1. DOXYCYCLINE [Suspect]
     Active Substance: DOXYCYCLINE
     Indication: Dermatomyositis
     Route: 065

REACTIONS (6)
  - Syncope [Unknown]
  - Anaemia [Unknown]
  - Gastritis erosive [Recovered/Resolved]
  - Melaena [Recovered/Resolved]
  - Gastric ulcer [Recovered/Resolved]
  - Gastrointestinal injury [Recovered/Resolved]
